FAERS Safety Report 22202313 (Version 1)
Quarter: 2023Q2

REPORT INFORMATION
  Report Type: Spontaneous
  Country: ES (occurrence: ES)
  Receive Date: 20230412
  Receipt Date: 20230412
  Transmission Date: 20230721
  Serious: Yes (Other)
  Sender: FDA-Public Use
  Company Number: None

PATIENT
  Age: 62 Year
  Sex: Female

DRUGS (4)
  1. VALSARTAN [Suspect]
     Active Substance: VALSARTAN
     Indication: Product used for unknown indication
     Route: 065
     Dates: start: 20200820
  2. PARACETAMOL CINFA [Concomitant]
     Indication: Chest pain
     Dosage: PARACETAMOL CINFA 1 G EFERVESCENT POWDER EFG, 40 SACHETS
     Route: 065
     Dates: start: 20200831
  3. SIMVASTATINA CINFA [Concomitant]
     Indication: Type V hyperlipidaemia
     Dosage: SIMVASTATIN CINFA 20 MG FILM-COATED TABLETS EFG, 28 TABLETS
     Route: 065
     Dates: start: 20101129
  4. CHOLECALCIFEROL [Concomitant]
     Active Substance: CHOLECALCIFEROL
     Indication: Product used for unknown indication
     Dosage: DELTIUS 25,000 IU/2.5 ML ORAL SOLUTION, 4 BOTTLES OF 2.5 ML
     Dates: start: 20190301

REACTIONS (1)
  - Oral pruritus [Not Recovered/Not Resolved]

NARRATIVE: CASE EVENT DATE: 20201101
